FAERS Safety Report 14376760 (Version 3)
Quarter: 2018Q4

REPORT INFORMATION
  Report Type: Spontaneous
  Country: US (occurrence: US)
  Receive Date: 20180111
  Receipt Date: 20181204
  Transmission Date: 20190204
  Serious: Yes (Life-Threatening, Hospitalization, Other)
  Sender: FDA-Public Use
  Company Number: US-PFIZER INC-2018009355

PATIENT
  Age: 53 Year
  Sex: Female
  Weight: 70.76 kg

DRUGS (9)
  1. LYRICA [Suspect]
     Active Substance: PREGABALIN
     Dosage: 200 MG, 2X/DAY
     Route: 048
  2. LYRICA [Suspect]
     Active Substance: PREGABALIN
     Dosage: UNK
  3. ZONEGRAN [Concomitant]
     Active Substance: ZONISAMIDE
     Indication: GENERALISED TONIC-CLONIC SEIZURE
     Dosage: UNK
     Dates: start: 2007
  4. LYRICA [Suspect]
     Active Substance: PREGABALIN
     Indication: FIBROMYALGIA
     Dosage: 150 MG, 2X/DAY(1 IN MORNING AND 1 AT NIGHT)
     Route: 048
  5. LYRICA [Suspect]
     Active Substance: PREGABALIN
     Dosage: 100 MG, 3X/DAY
     Route: 048
  6. LYRICA [Suspect]
     Active Substance: PREGABALIN
     Dosage: 300 MG, DAILY
  7. LYRICA [Suspect]
     Active Substance: PREGABALIN
     Dosage: 75 MG, 2X/DAY (2-3 YEARS)
  8. LYRICA [Suspect]
     Active Substance: PREGABALIN
     Dosage: 400 MG, UNK
     Dates: start: 2018
  9. CODEINE [Concomitant]
     Active Substance: CODEINE
     Indication: PAIN
     Dosage: 30 MG, UNK

REACTIONS (19)
  - Drug ineffective [Unknown]
  - Fall [Unknown]
  - Pain [Unknown]
  - Infection [Unknown]
  - Psoas abscess [Recovered/Resolved]
  - Wrist fracture [Unknown]
  - Osteoporosis [Not Recovered/Not Resolved]
  - Body height decreased [Unknown]
  - Skeletal injury [Unknown]
  - Back pain [Unknown]
  - Upper limb fracture [Unknown]
  - Intervertebral disc protrusion [Unknown]
  - Bone abscess [Recovered/Resolved]
  - Malaise [Unknown]
  - Vomiting [Unknown]
  - Headache [Recovered/Resolved]
  - Apparent death [Unknown]
  - Migraine [Recovered/Resolved]
  - Bedridden [Unknown]

NARRATIVE: CASE EVENT DATE: 2009
